FAERS Safety Report 8834749 (Version 1)
Quarter: 2012Q4

REPORT INFORMATION
  Report Type: 
  Country: PL (occurrence: PL)
  Receive Date: 20121010
  Receipt Date: 20121010
  Transmission Date: 20130627
  Serious: Yes (Other)
  Sender: FDA-Public Use
  Company Number: PL-JNJFOC-20121000099

PATIENT
  Age: 14 Year
  Sex: Male

DRUGS (9)
  1. DOXORUBICIN [Suspect]
     Indication: CHONDROSARCOMA
     Dosage: 25 mg/m2 on Day 1,2,3 of week 1 of VAC-ETIF-IFA regimen for I and IV cycle
     Route: 042
  2. CYCLOPHOSPHAMIDE [Suspect]
     Indication: CHONDROSARCOMA
     Dosage: on Day 1 of Week 1 of Cycle I and IV during the VAC-ETIF-IFA regimen
     Route: 065
  3. VINCRISTINE [Suspect]
     Indication: CHONDROSARCOMA
     Dosage: on Day 1 of Week 1 of Cycle I and IV during the VAC-ETIF-IFA regimen
     Route: 065
  4. IFOSFAMIDE [Suspect]
     Indication: CHONDROSARCOMA
     Dosage: on days 1, 2, 3, 4, 5 of Week 3 of cycles II and V during VAC-ETIF-IFA protocol regimen
     Route: 065
  5. VP-16 [Suspect]
     Indication: CHONDROSARCOMA
     Dosage: VAC-ETIF-IFA regimen on days 1,2,3,4 and 5 of Week 3 of Cycles II and V.
     Route: 065
  6. RADIOTHERAPY [Suspect]
     Indication: CHONDROSARCOMA
     Dosage: total dose of 45 Gy in fraction doses of 1.8 Gy
     Route: 065
  7. ACTINOMYCIN D [Suspect]
     Indication: CHONDROSARCOMA
     Dosage: on days 1, 2, 3, 4 and 5
     Route: 065
  8. DACARBAZINE [Suspect]
     Indication: CHONDROSARCOMA
     Route: 065
  9. CISPLATIN [Suspect]
     Indication: CHONDROSARCOMA
     Dosage: on days 1, 2 and 3 of cycle 7, 8 and 9. Three times every 21 days.
     Route: 065

REACTIONS (8)
  - Pancytopenia [Unknown]
  - Enterococcal sepsis [Unknown]
  - Decreased appetite [Unknown]
  - Staphylococcal sepsis [Unknown]
  - Chondrosarcoma [Not Recovered/Not Resolved]
  - Hepatic function abnormal [Unknown]
  - Oral fungal infection [Unknown]
  - Off label use [Unknown]
